FAERS Safety Report 16736675 (Version 1)
Quarter: 2019Q3

REPORT INFORMATION
  Report Type: Spontaneous
  Country: JP (occurrence: JP)
  Receive Date: 20190823
  Receipt Date: 20190823
  Transmission Date: 20191005
  Serious: Yes (Other)
  Sender: FDA-Public Use
  Company Number: JP-JNJFOC-20190827636

PATIENT
  Age: 84 Year
  Sex: Female

DRUGS (6)
  1. AMLODIN [Concomitant]
     Active Substance: AMLODIPINE BESYLATE
     Route: 048
  2. TEPRENONE [Concomitant]
     Active Substance: TEPRENONE
     Route: 048
  3. REMINYL [Suspect]
     Active Substance: GALANTAMINE
     Indication: DEMENTIA ALZHEIMER^S TYPE
     Route: 048
  4. EDIROL [Concomitant]
     Active Substance: ELDECALCITOL
     Route: 048
  5. SARPOGRELATE HYDROCHLORIDE [Concomitant]
     Active Substance: SARPOGRELATE HYDROCHLORIDE
     Route: 048
  6. PRAVASTATIN SODIUM. [Concomitant]
     Active Substance: PRAVASTATIN SODIUM
     Route: 048

REACTIONS (1)
  - Hypokalaemia [Not Recovered/Not Resolved]

NARRATIVE: CASE EVENT DATE: 20190801
